FAERS Safety Report 20492838 (Version 2)
Quarter: 2022Q1

REPORT INFORMATION
  Report Type: Spontaneous
  Country: GR (occurrence: None)
  Receive Date: 20220219
  Receipt Date: 20220326
  Transmission Date: 20220423
  Serious: No
  Sender: FDA-Public Use
  Company Number: GR-ROCHE-3028298

PATIENT
  Age: 34 Year
  Sex: Female

DRUGS (2)
  1. OCREVUS [Suspect]
     Active Substance: OCRELIZUMAB
     Indication: Relapsing-remitting multiple sclerosis
     Dosage: 300 MG IV. X2; DATE OF LAST ADMINISTRATION OF OCRELIZUMAB BEFORE THE COVID-19 VACCINATION 30/MAR/202
     Route: 042
     Dates: start: 20210302
  2. PFIZER-BIONTECH COVID-19 VACCINE [Concomitant]
     Active Substance: TOZINAMERAN
     Indication: COVID-19 immunisation
     Dosage: DATES: 21/JUL/2021 AND 11/AUG/2021. SHE DID NOT RECEIVE 3RD DOSE AS SHE GOT SICK ON 13/DEC/2021

REACTIONS (1)
  - COVID-19 [Recovered/Resolved]

NARRATIVE: CASE EVENT DATE: 20220124
